FAERS Safety Report 25132320 (Version 1)
Quarter: 2025Q1

REPORT INFORMATION
  Report Type: Spontaneous
  Country: US (occurrence: US)
  Receive Date: 20250328
  Receipt Date: 20250328
  Transmission Date: 20250408
  Serious: No
  Sender: ALEXION PHARMACEUTICALS
  Company Number: US-AstraZeneca-CH-00718234AP

PATIENT

DRUGS (2)
  1. BREZTRI [Suspect]
     Active Substance: BUDESONIDE\FORMOTEROL\GLYCOPYRROLATE
  2. ALBUTEROL [Concomitant]
     Active Substance: ALBUTEROL
     Route: 065

REACTIONS (6)
  - Product storage error [Unknown]
  - Device delivery system issue [Unknown]
  - Incorrect dose administered by device [Unknown]
  - Product dose omission issue [Unknown]
  - Visual impairment [Unknown]
  - Device use issue [Unknown]
